FAERS Safety Report 7815214-8 (Version None)
Quarter: 2011Q4

REPORT INFORMATION
  Report Type: 
  Country: None (occurrence: None)
  Receive Date: 20111014
  Receipt Date: 20111004
  Transmission Date: 20120403
  Serious: Yes (Death, Hospitalization, Other)
  Sender: FDA-Public Use
  Company Number: US-JNJFOC-20061003248

PATIENT
  Sex: Male
  Weight: 81.65 kg

DRUGS (12)
  1. MERCAPTOPURINE [Suspect]
     Dosage: DECREASED TO 50 MG/DAY AFTER 6-TG LEVELS WERE FOUND TO BE ELEVATED
     Dates: start: 20040101, end: 20060801
  2. ASACOL [Concomitant]
  3. FOLIC ACID [Concomitant]
  4. SINGULAIR [Concomitant]
  5. NEXIUM [Concomitant]
     Indication: GASTROOESOPHAGEAL REFLUX DISEASE
  6. BALSALAZIDE DISODIUM [Concomitant]
     Indication: CROHN'S DISEASE
  7. MERCAPTOPURINE [Suspect]
     Indication: CROHN'S DISEASE
     Dates: start: 20021001
  8. CALCIUM CARBONATE [Concomitant]
  9. NYSTATIN [Concomitant]
     Indication: DIARRHOEA
  10. REMICADE [Suspect]
     Indication: CROHN'S DISEASE
     Dosage: IN 2006, THE PATIENT RECEIVED 3 DOSES; 24 TOTAL DOSES OVER TOTAL TREATMENT PERIOD
     Route: 042
     Dates: start: 20021001, end: 20060801
  11. MERCAPTOPURINE [Suspect]
     Dates: start: 20020101
  12. PREDNISONE [Suspect]
     Indication: CROHN'S DISEASE
     Dates: start: 20030801

REACTIONS (6)
  - HEPATOSPLENIC T-CELL LYMPHOMA [None]
  - NEUROPATHY PERIPHERAL [None]
  - LUNG NEOPLASM [None]
  - NERVOUS SYSTEM DISORDER [None]
  - MUSCLE RUPTURE [None]
  - POSTOPERATIVE ABSCESS [None]
